FAERS Safety Report 8364934-8 (Version None)
Quarter: 2012Q2

REPORT INFORMATION
  Report Type: 
  Country: None (occurrence: None)
  Receive Date: 20120516
  Receipt Date: 20120507
  Transmission Date: 20120825
  Serious: Yes (Hospitalization)
  Sender: FDA-Public Use
  Company Number: JP-EISAI INC-E7389-02278-CLI-JP

PATIENT
  Sex: Male
  Weight: 59 kg

DRUGS (12)
  1. LEVOFLOXACIN [Concomitant]
  2. PROCHLORPERAZINE [Concomitant]
  3. AZUNOL [Concomitant]
     Route: 048
     Dates: start: 20120202
  4. EPIRUBICIN HYDROCHLORIDE [Suspect]
     Route: 041
     Dates: start: 20120112, end: 20120119
  5. OXYCONTIN [Concomitant]
  6. LOXONIN [Concomitant]
  7. PREGABALIN [Concomitant]
     Route: 048
     Dates: start: 20120322
  8. LASOPRAZOLE [Concomitant]
  9. OXYNORM [Concomitant]
  10. POSTERISAN [Concomitant]
  11. MAGNESIUM SULFATE [Concomitant]
     Indication: CANCER PAIN
     Route: 048
     Dates: start: 20111013
  12. EPIRUBICIN HYDROCHLORIDE [Suspect]
     Indication: LIPOSARCOMA
     Route: 041
     Dates: start: 20120202

REACTIONS (1)
  - ILEUS [None]
